FAERS Safety Report 4862813-1 (Version None)
Quarter: 2005Q4

REPORT INFORMATION
  Report Type: 
  Country: None (occurrence: None)
  Receive Date: 20051219
  Receipt Date: 20051205
  Transmission Date: 20060501
  Serious: Yes (Other)
  Sender: FDA-Public Use
  Company Number: 2005158104

PATIENT
  Sex: Male
  Weight: 99.7913 kg

DRUGS (4)
  1. VIAGRA [Suspect]
     Indication: ERECTILE DYSFUNCTION
     Dosage: 50 MG (50 MG, AS NECESSARY), ORAL
     Route: 048
  2. LOTREL [Concomitant]
  3. GABAPENTIN [Concomitant]
  4. ELAVIL [Concomitant]

REACTIONS (4)
  - ACCIDENT AT WORK [None]
  - COMPLEX REGIONAL PAIN SYNDROME [None]
  - DRUG INEFFECTIVE [None]
  - SINUSITIS [None]
